FAERS Safety Report 15245190 (Version 1)
Quarter: 2018Q3

REPORT INFORMATION
  Report Type: Spontaneous
  Country: US (occurrence: US)
  Receive Date: 20180806
  Receipt Date: 20180806
  Transmission Date: 20181010
  Serious: No
  Sender: FDA-Public Use
  Company Number: US-PFIZER INC-2018309567

PATIENT
  Age: 37 Year
  Sex: Female
  Weight: 122.47 kg

DRUGS (4)
  1. VERAPAMIL HCL [Suspect]
     Active Substance: VERAPAMIL HYDROCHLORIDE
     Indication: PARAESTHESIA
  2. UNISOM SLEEPTABS [Concomitant]
     Active Substance: DOXYLAMINE SUCCINATE
     Dosage: UNK
  3. VERAPAMIL HCL [Suspect]
     Active Substance: VERAPAMIL HYDROCHLORIDE
     Indication: MIGRAINE PROPHYLAXIS
     Dosage: 120?240 MG A DAY TABLET BY MOUTH ONCE A DAY EVERY SINGLE DAY
     Route: 048
     Dates: start: 2013
  4. AMPHETAMINE [Concomitant]
     Active Substance: AMPHETAMINE
     Indication: WEIGHT DECREASED
     Dosage: UNK

REACTIONS (3)
  - Drug screen false positive [Unknown]
  - Product use in unapproved indication [Unknown]
  - Speech disorder [Unknown]

NARRATIVE: CASE EVENT DATE: 20180717
